FAERS Safety Report 25858737 (Version 1)
Quarter: 2025Q3

REPORT INFORMATION
  Report Type: Spontaneous
  Country: EU (occurrence: EU)
  Receive Date: 20250929
  Receipt Date: 20250929
  Transmission Date: 20251020
  Serious: Yes (Other)
  Sender: MYLAN
  Company Number: None

PATIENT
  Age: 21 Year
  Sex: Male

DRUGS (2)
  1. XANAX [Suspect]
     Active Substance: ALPRAZOLAM
     Indication: Product used for unknown indication
     Dates: start: 20250416, end: 20250416
  2. XANAX [Suspect]
     Active Substance: ALPRAZOLAM
     Dosage: 0.25 MILLIGRAM, BID (USUAL TREATMENT: 0.25 MG MORNING AND EVENING)

REACTIONS (4)
  - Drug use disorder [Unknown]
  - Nausea [Recovered/Resolved]
  - Vertigo [Recovered/Resolved]
  - Asthenia [Recovered/Resolved]

NARRATIVE: CASE EVENT DATE: 20250416
